FAERS Safety Report 16431106 (Version 1)
Quarter: 2019Q2

REPORT INFORMATION
  Report Type: Spontaneous
  Country: US (occurrence: US)
  Receive Date: 20190614
  Receipt Date: 20190614
  Transmission Date: 20190711
  Serious: No
  Sender: FDA-Public Use
  Company Number: US-PFIZER INC-2019184532

PATIENT
  Sex: Female

DRUGS (4)
  1. DOXYCYCLINE HYCLATE. [Suspect]
     Active Substance: DOXYCYCLINE HYCLATE
     Indication: HIDRADENITIS
     Dosage: UNK
  2. DOXYCYCLINE HYCLATE. [Suspect]
     Active Substance: DOXYCYCLINE HYCLATE
     Indication: ABSCESS
  3. ALDACTIN [Concomitant]
     Indication: HIDRADENITIS
     Dosage: 50 MG, 2X/DAY
     Dates: start: 2018
  4. ACNESONE [DAPSONE] [Concomitant]
     Indication: HIDRADENITIS
     Dosage: UNK, 2X/DAY
     Dates: start: 2018

REACTIONS (2)
  - Drug effective for unapproved indication [Unknown]
  - Off label use [Unknown]
